FAERS Safety Report 16737485 (Version 2)
Quarter: 2020Q3

REPORT INFORMATION
  Report Type: Spontaneous
  Country: US (occurrence: US)
  Receive Date: 20190823
  Receipt Date: 20200708
  Transmission Date: 20201102
  Serious: Yes (Disabling)
  Sender: FDA-Public Use
  Company Number: US-PROCTER_AND_GAMBLE-GS19087297

PATIENT
  Age: 31 Year
  Sex: Female

DRUGS (1)
  1. SECRETAPDO+BSPRAY [Suspect]
     Active Substance: ALUMINUM ZIRCONIUM TRICHLOROHYDREX GLY
     Dosage: 2?3 SWIPES EACH ARMPITS 3 TIMES DAILY
     Route: 061
     Dates: start: 2017, end: 201812

REACTIONS (10)
  - Pain of skin [Not Recovered/Not Resolved]
  - Pruritus [Recovered/Resolved]
  - Skin discolouration [Not Recovered/Not Resolved]
  - Musculoskeletal disorder [Not Recovered/Not Resolved]
  - Purulence [Not Recovered/Not Resolved]
  - Skin disorder [Recovering/Resolving]
  - Surgical procedure repeated [Unknown]
  - Skin swelling [Recovered/Resolved]
  - Rash [Recovered/Resolved]
  - Skin exfoliation [Not Recovered/Not Resolved]

NARRATIVE: CASE EVENT DATE: 201712
